FAERS Safety Report 14138666 (Version 2)
Quarter: 2017Q4

REPORT INFORMATION
  Report Type: Report from Study
  Country: US (occurrence: US)
  Receive Date: 20171027
  Receipt Date: 20171214
  Transmission Date: 20180321
  Serious: Yes (Hospitalization)
  Sender: FDA-Public Use
  Company Number: US-ASTRAZENECA-2017SF08295

PATIENT
  Age: 22379 Day
  Sex: Female

DRUGS (21)
  1. AZD6244 [Suspect]
     Active Substance: SELUMETINIB
     Indication: NEOPLASM MALIGNANT
     Route: 048
     Dates: start: 20170620, end: 20170626
  2. AZD6244 [Suspect]
     Active Substance: SELUMETINIB
     Indication: NEOPLASM MALIGNANT
     Route: 048
     Dates: start: 20170523, end: 20170529
  3. CENTRUM [Concomitant]
     Active Substance: VITAMINS
     Indication: SUPPLEMENTATION THERAPY
     Route: 048
     Dates: start: 1985
  4. AZD6244 [Suspect]
     Active Substance: SELUMETINIB
     Indication: NEOPLASM MALIGNANT
     Route: 048
     Dates: start: 20170118, end: 20170123
  5. AZD6244 [Suspect]
     Active Substance: SELUMETINIB
     Indication: NEOPLASM MALIGNANT
     Route: 048
     Dates: start: 20170705, end: 20170711
  6. CALTRATE [Concomitant]
     Active Substance: CALCIUM CARBONATE
     Indication: SUPPLEMENTATION THERAPY
     Route: 048
     Dates: start: 199606
  7. AMOXICILLIN. [Concomitant]
     Active Substance: AMOXICILLIN
     Indication: BACTERAEMIA
     Route: 048
     Dates: start: 20170627
  8. AZD6244 [Suspect]
     Active Substance: SELUMETINIB
     Indication: NEOPLASM MALIGNANT
     Route: 048
     Dates: start: 20170131, end: 20170206
  9. AZD6244 [Suspect]
     Active Substance: SELUMETINIB
     Indication: NEOPLASM MALIGNANT
     Route: 048
     Dates: start: 20170314, end: 20170320
  10. AZD6244 [Suspect]
     Active Substance: SELUMETINIB
     Indication: NEOPLASM MALIGNANT
     Route: 048
     Dates: start: 20170117, end: 20170117
  11. AZD6244 [Suspect]
     Active Substance: SELUMETINIB
     Indication: NEOPLASM MALIGNANT
     Route: 048
     Dates: start: 20170214, end: 20170306
  12. AZD6244 [Suspect]
     Active Substance: SELUMETINIB
     Indication: NEOPLASM MALIGNANT
     Route: 048
     Dates: start: 20170509, end: 20170515
  13. AZD6244 [Suspect]
     Active Substance: SELUMETINIB
     Indication: NEOPLASM MALIGNANT
     Route: 048
     Dates: start: 20170606, end: 20170612
  14. GEODON [Concomitant]
     Active Substance: ZIPRASIDONE HYDROCHLORIDE\ZIPRASIDONE MESYLATE
     Indication: SCHIZOPHRENIA
     Route: 048
     Dates: start: 200405
  15. GEODON [Concomitant]
     Active Substance: ZIPRASIDONE HYDROCHLORIDE\ZIPRASIDONE MESYLATE
     Indication: AFFECTIVE DISORDER
     Route: 048
     Dates: start: 200405
  16. LOPERAMIDE HYDROCHLORIDE. [Concomitant]
     Active Substance: LOPERAMIDE HYDROCHLORIDE
     Indication: DIARRHOEA
     Dosage: 2.0MG AS REQUIRED
     Route: 048
     Dates: start: 20170206
  17. MEDI4736 [Suspect]
     Active Substance: DURVALUMAB
     Indication: NEOPLASM MALIGNANT
     Route: 042
  18. AZD6244 [Suspect]
     Active Substance: SELUMETINIB
     Indication: NEOPLASM MALIGNANT
     Route: 048
     Dates: start: 20170328, end: 20170403
  19. AZD6244 [Suspect]
     Active Substance: SELUMETINIB
     Indication: NEOPLASM MALIGNANT
     Route: 048
     Dates: start: 20170411, end: 20170417
  20. AZD6244 [Suspect]
     Active Substance: SELUMETINIB
     Indication: NEOPLASM MALIGNANT
     Route: 048
     Dates: start: 20170425, end: 20170501
  21. SYNTHROID [Concomitant]
     Active Substance: LEVOTHYROXINE SODIUM
     Indication: HYPOTHYROIDISM
     Route: 048
     Dates: start: 201206

REACTIONS (2)
  - Vomiting [Recovered/Resolved]
  - Diarrhoea [Recovered/Resolved]

NARRATIVE: CASE EVENT DATE: 20171017
